FAERS Safety Report 7584463-9 (Version None)
Quarter: 2011Q2

REPORT INFORMATION
  Report Type: 
  Country: None (occurrence: None)
  Receive Date: 20110630
  Receipt Date: 20110627
  Transmission Date: 20111010
  Serious: Yes (Disabling)
  Sender: FDA-Public Use
  Company Number: DE-SANOFI-AVENTIS-2011SA031430

PATIENT
  Age: 60 Year
  Sex: Female
  Weight: 82 kg

DRUGS (13)
  1. LANTUS [Suspect]
     Route: 058
     Dates: start: 20110505
  2. TORSEMIDE [Concomitant]
     Indication: DIURETIC THERAPY
     Route: 048
     Dates: start: 20050101
  3. GLYBURIDE [Concomitant]
     Route: 048
     Dates: start: 20050101
  4. GALVUS [Concomitant]
     Route: 048
     Dates: start: 20090101
  5. FEBUXOSTAT [Concomitant]
     Route: 048
     Dates: start: 20110401
  6. LANTUS [Suspect]
     Dates: start: 20110505
  7. ENALAPRIL MALEATE [Concomitant]
     Indication: CARDIOVASCULAR DISORDER
     Route: 048
     Dates: start: 20050101
  8. FUROSEMIDE [Concomitant]
     Indication: CARDIOVASCULAR DISORDER
     Route: 065
  9. SIMVASTATIN [Concomitant]
     Indication: BLOOD CHOLESTEROL ABNORMAL
     Route: 048
     Dates: start: 20050101
  10. ENALAPRIL MALEATE [Concomitant]
     Indication: BLOOD PRESSURE ABNORMAL
     Route: 048
     Dates: start: 20050101
  11. ASPIRIN [Concomitant]
     Indication: ANTICOAGULANT THERAPY
     Route: 048
  12. TRENTAL [Concomitant]
     Indication: ANTICOAGULANT THERAPY
     Route: 048
  13. LYRICA [Concomitant]
     Route: 048
     Dates: start: 20090101

REACTIONS (3)
  - VISUAL IMPAIRMENT [None]
  - VISION BLURRED [None]
  - EYE OEDEMA [None]
